FAERS Safety Report 8531744-8 (Version None)
Quarter: 2012Q3

REPORT INFORMATION
  Report Type: 
  Country: None (occurrence: None)
  Receive Date: 20120723
  Receipt Date: 20120712
  Transmission Date: 20120928
  Serious: Yes (Hospitalization)
  Sender: FDA-Public Use
  Company Number: JP-VERTEX PHARMACEUTICALS INC.-AE-2012-010566

PATIENT
  Age: 68 Year
  Sex: Female

DRUGS (10)
  1. RIKKUNSHITO [Concomitant]
     Route: 048
     Dates: start: 20120604, end: 20120622
  2. DEPAS [Concomitant]
     Route: 048
     Dates: end: 20120622
  3. ADALAT [Concomitant]
     Route: 048
  4. TALION [Concomitant]
     Route: 048
     Dates: start: 20120604, end: 20120622
  5. REBETOL [Concomitant]
     Indication: HEPATITIS C
     Route: 048
     Dates: start: 20120604, end: 20120608
  6. RENIVCE [Concomitant]
     Route: 048
  7. CANDESARTAN CILEXETIL [Concomitant]
     Route: 048
     Dates: start: 20120604, end: 20120622
  8. TELAVIC (TELAPREVIR) [Suspect]
     Indication: HEPATITIS C
     Route: 048
     Dates: start: 20120604, end: 20120608
  9. PEG-INTRON [Concomitant]
     Indication: HEPATITIS C
     Route: 058
     Dates: start: 20120604, end: 20120604
  10. URSO 250 [Concomitant]
     Route: 048
     Dates: start: 20120609, end: 20120622

REACTIONS (2)
  - RENAL IMPAIRMENT [None]
  - HYPERURICAEMIA [None]
